FAERS Safety Report 18320742 (Version 2)
Quarter: 2020Q4

REPORT INFORMATION
  Report Type: Spontaneous
  Country: US (occurrence: US)
  Receive Date: 20200929
  Receipt Date: 20201221
  Transmission Date: 20210113
  Serious: No
  Sender: FDA-Public Use
  Company Number: US-AUROBINDO-AUR-APL-2020-035930

PATIENT
  Age: 56 Year
  Sex: Female
  Weight: 75.73 kg

DRUGS (5)
  1. ARMODAFINIL TABLETS 200 MG [Suspect]
     Active Substance: ARMODAFINIL
     Dosage: UNK
     Route: 065
     Dates: start: 20200714
  2. ARMODAFINIL TABLETS 200 MG [Suspect]
     Active Substance: ARMODAFINIL
     Dosage: UNK
     Route: 065
  3. ARMODAFINIL. [Concomitant]
     Active Substance: ARMODAFINIL
     Dosage: UNK
     Route: 065
     Dates: start: 20200714
  4. ARMODAFINIL TABLETS 200 MG [Suspect]
     Active Substance: ARMODAFINIL
     Indication: POOR QUALITY SLEEP
     Dosage: UNK UNK, ONCE A DAY
     Route: 065
  5. ARMODAFINIL. [Concomitant]
     Active Substance: ARMODAFINIL
     Indication: POOR QUALITY SLEEP
     Dosage: UNK
     Route: 065

REACTIONS (2)
  - Drug ineffective [Unknown]
  - Somnolence [Not Recovered/Not Resolved]
